FAERS Safety Report 5211880-4 (Version None)
Quarter: 2007Q1

REPORT INFORMATION
  Report Type: 
  Country: None (occurrence: None)
  Receive Date: 20070116
  Receipt Date: 20070116
  Transmission Date: 20070707
  Serious: No
  Sender: FDA-Public Use
  Company Number: None

PATIENT
  Age: 58 Year
  Sex: Female

DRUGS (2)
  1. LEVOFLOXACIN [Suspect]
  2. INSULIN [Suspect]

REACTIONS (1)
  - HYPOGLYCAEMIA [None]
